FAERS Safety Report 12316623 (Version 1)
Quarter: 2016Q2

REPORT INFORMATION
  Report Type: Spontaneous
  Country: GB (occurrence: GB)
  Receive Date: 20160429
  Receipt Date: 20160429
  Transmission Date: 20160815
  Serious: Yes (Disabling)
  Sender: FDA-Public Use
  Company Number: GB-HOSPIRA-3261815

PATIENT
  Age: 39 Year
  Sex: Female

DRUGS (1)
  1. GENTAMICIN SULFATE. [Suspect]
     Active Substance: GENTAMICIN SULFATE
     Indication: BRONCHIECTASIS
     Route: 042
     Dates: start: 20160120, end: 20160203

REACTIONS (4)
  - Feeling drunk [Unknown]
  - Gait disturbance [Unknown]
  - Photophobia [Unknown]
  - Ototoxicity [Not Recovered/Not Resolved]
